FAERS Safety Report 21119726 (Version 1)
Quarter: 2022Q3

REPORT INFORMATION
  Report Type: Report from Study
  Country: DE (occurrence: DE)
  Receive Date: 20220722
  Receipt Date: 20220722
  Transmission Date: 20221027
  Serious: Yes (Other)
  Sender: FDA-Public Use
  Company Number: DE-CELLTRION INC.-2022DE000277

PATIENT

DRUGS (8)
  1. TRASTUZUMAB [Suspect]
     Active Substance: TRASTUZUMAB
     Indication: Breast cancer
     Dosage: 680 MG (LINE OF TREATMENT : NEOADJUVANT AND ON 29/NOV/2021, HAD MOST RECENT DOSE OF TRASTUZUMAB)
     Route: 042
     Dates: start: 20211129
  2. TRASTUZUMAB [Suspect]
     Active Substance: TRASTUZUMAB
     Dosage: 510 MG (LINE OF TREATMENT : NEOADJUVANT, MOST RECENT DOSE: 31/JAN/2022)
     Route: 042
     Dates: start: 20211220
  3. PERTUZUMAB [Suspect]
     Active Substance: PERTUZUMAB
     Indication: Breast cancer
     Dosage: 840 MG, EVERY DAY (LINE OF TREATMENT: NEOADJUVANT AND ON 29/NOV/2021, HAD LAST DOSE OF PERTUZUMAB)
     Route: 042
     Dates: start: 20211129
  4. PERTUZUMAB [Suspect]
     Active Substance: PERTUZUMAB
     Dosage: 420 MG (LINE OF TREATMENT: NEOADJUVANT; MOST RECENT DOSE: 31/JAN/2022)
     Route: 042
     Dates: start: 20211220
  5. AMOXICILLIN [Concomitant]
     Active Substance: AMOXICILLIN
     Dosage: 875 MG, 0.5 PER DAY
     Dates: start: 20211215, end: 20211219
  6. CODEINE [Concomitant]
     Active Substance: CODEINE
     Dosage: 1 MG, QD
     Dates: start: 20211215, end: 20211219
  7. CLARITHROMYCIN [Concomitant]
     Active Substance: CLARITHROMYCIN
     Dosage: 500 MG, EVERY 0.5 DAYS
     Dates: start: 20211215, end: 20211217
  8. FEXOFENADERM [Concomitant]
     Dosage: 180 MG, QD
     Dates: start: 20211215, end: 20211218

REACTIONS (4)
  - Polyneuropathy [Unknown]
  - Abscess [Recovered/Resolved]
  - Pyrexia [Recovered/Resolved]
  - Diarrhoea [Recovered/Resolved]

NARRATIVE: CASE EVENT DATE: 20211202
